FAERS Safety Report 4663001-4 (Version None)
Quarter: 2005Q2

REPORT INFORMATION
  Report Type: 
  Country: None (occurrence: None)
  Receive Date: 20050513
  Receipt Date: 20050503
  Transmission Date: 20051028
  Serious: Yes (Hospitalization)
  Sender: FDA-Public Use
  Company Number: DE-SHR-03-007809

PATIENT
  Sex: Male
  Weight: 72 kg

DRUGS (1)
  1. BETASERON [Suspect]
     Indication: MULTIPLE SCLEROSIS
     Dosage: EVERY 2D, SUBCUTANEOUS
     Route: 058
     Dates: start: 20010101

REACTIONS (3)
  - COLONIC POLYP [None]
  - DEPRESSED MOOD [None]
  - WEIGHT DECREASED [None]
